FAERS Safety Report 26139701 (Version 2)
Quarter: 2025Q4

REPORT INFORMATION
  Report Type: Spontaneous
  Country: EU (occurrence: EU)
  Receive Date: 20251210
  Receipt Date: 20251231
  Transmission Date: 20260117
  Serious: Yes (Death, Life-Threatening, Hospitalization, Other)
  Sender: SANDOZ
  Company Number: EU-NOVPHSZ-PHHY2019DE117518

PATIENT
  Age: 75 Year
  Sex: Male

DRUGS (11)
  1. ESOMEPRAZOLE [Interacting]
     Active Substance: ESOMEPRAZOLE
     Indication: Gastrooesophageal reflux disease
     Dosage: 40 MG, QD
  2. ESOMEPRAZOLE [Interacting]
     Active Substance: ESOMEPRAZOLE
     Dosage: UNK
  3. PIRFENIDONE [Interacting]
     Active Substance: PIRFENIDONE
     Indication: Idiopathic pulmonary fibrosis
     Dosage: 801 MGTID,WEEK 1
  4. PIRFENIDONE [Interacting]
     Active Substance: PIRFENIDONE
     Dosage: 1602 MGQD,WEEK 2
  5. PIRFENIDONE [Interacting]
     Active Substance: PIRFENIDONE
     Dosage: 2403 MGQD,WEEK 3
  6. PIRFENIDONE [Interacting]
     Active Substance: PIRFENIDONE
     Dosage: 534 MG, TID
  7. PIRFENIDONE [Interacting]
     Active Substance: PIRFENIDONE
     Dosage: 267 MG, Q8H
  8. PIRFENIDONE [Interacting]
     Active Substance: PIRFENIDONE
     Dosage: 801 MG, Q8H, PAUSED THE TREATMENT FOR 2 WEEKS
  9. PIRFENIDONE [Interacting]
     Active Substance: PIRFENIDONE
     Dosage: 267 MG, WEEK 1
  10. PIRFENIDONE [Interacting]
     Active Substance: PIRFENIDONE
     Dosage: 534 MG, WEEK 2
  11. PIRFENIDONE [Interacting]
     Active Substance: PIRFENIDONE
     Dosage: 801 MG, WEEK 3

REACTIONS (15)
  - Multiple organ dysfunction syndrome [Fatal]
  - Lactic acidosis [Fatal]
  - Escherichia sepsis [Fatal]
  - Sepsis [Fatal]
  - Escherichia infection [Fatal]
  - Acute hepatic failure [Unknown]
  - Drug interaction [Unknown]
  - Drug-induced liver injury [Unknown]
  - Photophobia [Unknown]
  - Transaminases increased [Unknown]
  - Jaundice [Unknown]
  - Pruritus [Unknown]
  - Fatigue [Unknown]
  - Nausea [Unknown]
  - Photosensitivity reaction [Unknown]
